FAERS Safety Report 12312295 (Version 1)
Quarter: 2016Q2

REPORT INFORMATION
  Report Type: Spontaneous
  Country: JP (occurrence: JP)
  Receive Date: 20160428
  Receipt Date: 20160428
  Transmission Date: 20160815
  Serious: Yes (Hospitalization, Other)
  Sender: FDA-Public Use
  Company Number: JP-BRISTOL-MYERS SQUIBB COMPANY-BMS-2016-010539

PATIENT
  Age: 87 Year
  Sex: Male

DRUGS (1)
  1. NIVOLUMAB [Suspect]
     Active Substance: NIVOLUMAB
     Indication: PROSTATE CANCER
     Dosage: UNK
     Route: 065

REACTIONS (7)
  - Platelet count decreased [Unknown]
  - Dyspnoea [Unknown]
  - Off label use [Unknown]
  - Transfusion [Unknown]
  - Gait disturbance [Unknown]
  - Cough [Unknown]
  - Diarrhoea [Unknown]
